FAERS Safety Report 17334871 (Version 4)
Quarter: 2020Q1

REPORT INFORMATION
  Report Type: Report from Study
  Country: DE (occurrence: DE)
  Receive Date: 20200128
  Receipt Date: 20200210
  Transmission Date: 20200409
  Serious: Yes (Congenital Anomaly, Other)
  Sender: FDA-Public Use
  Company Number: DE-VIIV HEALTHCARE LIMITED-DE2020GSK014474

PATIENT
  Sex: Male
  Weight: 2.9 kg

DRUGS (1)
  1. LAMIVUDINE. [Suspect]
     Active Substance: LAMIVUDINE
     Indication: HEPATITIS B
     Dosage: UNK
     Route: 064
     Dates: start: 20180309, end: 20181207

REACTIONS (3)
  - Persistent foetal circulation [Unknown]
  - Foetal exposure during pregnancy [Unknown]
  - Cryptorchism [Unknown]
